FAERS Safety Report 6965642-8 (Version None)
Quarter: 2010Q3

REPORT INFORMATION
  Report Type: 
  Country: None (occurrence: None)
  Receive Date: 20100903
  Receipt Date: 20100818
  Transmission Date: 20110219
  Serious: Yes (Life-Threatening, Hospitalization)
  Sender: FDA-Public Use
  Company Number: BE-JNJFOC-20100900387

PATIENT
  Age: 10 Year
  Sex: Female

DRUGS (2)
  1. DITROPAN [Suspect]
     Indication: ENURESIS
     Route: 065
  2. DESMOPRESSIN ACETATE [Interacting]
     Indication: ENURESIS
     Route: 045

REACTIONS (5)
  - CONVULSION [None]
  - DRUG INTERACTION [None]
  - DRY MOUTH [None]
  - HYPONATRAEMIA [None]
  - LOSS OF CONSCIOUSNESS [None]
